FAERS Safety Report 25520179 (Version 3)
Quarter: 2025Q3

REPORT INFORMATION
  Report Type: Report from Study
  Country: CO (occurrence: CO)
  Receive Date: 20250704
  Receipt Date: 20250922
  Transmission Date: 20251020
  Serious: Yes (Hospitalization, Other)
  Sender: ALEXION PHARMACEUTICALS
  Company Number: CO-AstraZeneca-CH-00887456A

PATIENT
  Age: 72 Year
  Sex: Female
  Weight: 60 kg

DRUGS (2)
  1. BENRALIZUMAB [Suspect]
     Active Substance: BENRALIZUMAB
     Indication: Asthma
     Dosage: 30 MILLIGRAM, Q8W
     Dates: start: 20200225
  2. BENRALIZUMAB [Suspect]
     Active Substance: BENRALIZUMAB

REACTIONS (16)
  - Influenza [Unknown]
  - Pneumonitis [Unknown]
  - Aphonia [Unknown]
  - Cough [Unknown]
  - Productive cough [Unknown]
  - Eosinophil count increased [Unknown]
  - Oropharyngeal pain [Unknown]
  - Headache [Unknown]
  - Pain [Unknown]
  - Bone pain [Unknown]
  - Dyspnoea [Unknown]
  - Oxygen saturation decreased [Unknown]
  - Wheezing [Unknown]
  - Bronchial obstruction [Unknown]
  - General physical health deterioration [Unknown]
  - Product use issue [Unknown]

NARRATIVE: CASE EVENT DATE: 20250501
